FAERS Safety Report 20950592 (Version 1)
Quarter: 2022Q2

REPORT INFORMATION
  Report Type: Spontaneous
  Country: US (occurrence: None)
  Receive Date: 20220611
  Receipt Date: 20220611
  Transmission Date: 20220721
  Serious: Yes (Death)
  Sender: FDA-Public Use
  Company Number: None

PATIENT
  Sex: Male
  Weight: 66.7 kg

DRUGS (4)
  1. FLUOROURACIL [Suspect]
     Active Substance: FLUOROURACIL
  2. CAMPTOSAR [Suspect]
     Active Substance: IRINOTECAN HYDROCHLORIDE
     Dates: end: 20220523
  3. LEUCOVORIN [Suspect]
     Active Substance: LEUCOVORIN
     Dates: end: 20220523
  4. ELOXATIN [Suspect]
     Active Substance: OXALIPLATIN
     Dates: end: 20220523

REACTIONS (2)
  - Fatigue [None]
  - Unresponsive to stimuli [None]

NARRATIVE: CASE EVENT DATE: 20220605
